FAERS Safety Report 16654307 (Version 1)
Quarter: 2019Q3

REPORT INFORMATION
  Report Type: Not Available
  Country: US (occurrence: US)
  Receive Date: 20190731
  Receipt Date: 20190731
  Transmission Date: 20191004
  Serious: Yes (Other)
  Sender: FDA-Public Use
  Company Number: US-ANIPHARMA-2019-US-013825

PATIENT
  Age: 64 Year
  Sex: Male

DRUGS (4)
  1. ZYTIGA [Suspect]
     Active Substance: ABIRATERONE ACETATE
     Dates: start: 20150226, end: 20160115
  2. LUPRON [Suspect]
     Active Substance: LEUPROLIDE ACETATE
     Dates: start: 20140212, end: 20170815
  3. CASODEX [Suspect]
     Active Substance: BICALUTAMIDE
     Indication: PROSTATE CANCER
     Dosage: 150 MG DAILY
     Dates: start: 20140110, end: 20150226
  4. XGEVA [Suspect]
     Active Substance: DENOSUMAB
     Dates: start: 20140212

REACTIONS (4)
  - Metastases to bone [Unknown]
  - Discomfort [Recovering/Resolving]
  - Prostatic specific antigen increased [Unknown]
  - Metastases to bone marrow [Unknown]

NARRATIVE: CASE EVENT DATE: 20140716
